FAERS Safety Report 13800737 (Version 6)
Quarter: 2017Q3

REPORT INFORMATION
  Report Type: Spontaneous
  Country: GB (occurrence: GB)
  Receive Date: 20170727
  Receipt Date: 20170927
  Transmission Date: 20171127
  Serious: Yes (Hospitalization)
  Sender: FDA-Public Use
  Company Number: GB-009507513-1707GBR011087

PATIENT
  Age: 70 Year
  Sex: Male

DRUGS (21)
  1. DARATUMUMAB [Suspect]
     Active Substance: DARATUMUMAB
     Dosage: C5 D15, 1260 MG, 1 IN 1 D
     Route: 041
     Dates: start: 20170608
  2. REVLIMID [Suspect]
     Active Substance: LENALIDOMIDE
     Indication: PLASMA CELL MYELOMA
     Dosage: 15 MG, 1 IN 1 D FOR 3 WEEKS
     Route: 048
     Dates: start: 20161130
  3. POLYETHYLENE GLYCOL [Concomitant]
     Active Substance: POLYETHYLENE GLYCOLS
     Indication: BOWEL MOVEMENT IRREGULARITY
     Dosage: UNK
     Route: 065
  4. DOCUSATE SODIUM. [Concomitant]
     Active Substance: DOCUSATE SODIUM
     Indication: CONSTIPATION
     Dosage: 200 MG, 2 IN 1 D
     Route: 048
     Dates: start: 20170313
  5. OXYCODONE [Concomitant]
     Active Substance: OXYCODONE
     Indication: BACK PAIN
     Dosage: 25 MG, 2 IN 1 D
     Route: 048
     Dates: start: 20170205
  6. DEXAMETHASONE. [Suspect]
     Active Substance: DEXAMETHASONE
     Dosage: 25-MAY-2017 (40 MG)
     Route: 041
     Dates: start: 20170515
  7. CIPROFLOXACIN. [Concomitant]
     Active Substance: CIPROFLOXACIN
     Indication: INFECTION PROPHYLAXIS
     Dosage: 500 MICROGRAM, 2 IN 1 D
     Route: 048
     Dates: start: 20170316
  8. OXYCODONE [Concomitant]
     Active Substance: OXYCODONE
     Dosage: 7.5 OTHER (7.5 DOSAGE FORMS,1 IN 1 D)
     Route: 048
     Dates: start: 20170205
  9. ACETAMINOPHEN. [Concomitant]
     Active Substance: ACETAMINOPHEN
     Indication: BACK PAIN
     Dosage: 1 G, 4 IN 1 D
     Route: 048
     Dates: start: 20170312
  10. ACETAMINOPHEN. [Concomitant]
     Active Substance: ACETAMINOPHEN
     Indication: PYREXIA
     Dosage: 1 G, 4 IN 1 D
     Route: 048
     Dates: start: 20161129
  11. DARATUMUMAB [Suspect]
     Active Substance: DARATUMUMAB
     Indication: PLASMA CELL MYELOMA
     Dosage: 1260 MG, 1 IN 1 D
     Route: 041
     Dates: start: 20161130, end: 20170525
  12. REVLIMID [Suspect]
     Active Substance: LENALIDOMIDE
     Dosage: DOSE (REDUCED) REINTRODUCED, UNKNOWN, 1 IN 1 D
     Route: 048
     Dates: start: 20170525, end: 20170605
  13. ENSURE [Concomitant]
     Active Substance: AMINO ACIDS\DEXTROSE\ELECTROLYTES NOS\SOYBEAN OIL\VITAMINS
     Indication: DECREASED APPETITE
     Dosage: UNK
     Route: 065
  14. FOLIC ACID. [Concomitant]
     Active Substance: FOLIC ACID
     Indication: DECREASED APPETITE
     Dosage: 5 MICROGRAM, 1 IN 1 D
     Route: 048
     Dates: start: 20161129
  15. DEXAMETHASONE. [Suspect]
     Active Substance: DEXAMETHASONE
     Indication: PLASMA CELL MYELOMA
     Dosage: UNKNOWN (40 MG)
     Route: 041
     Dates: start: 20161130
  16. DEXAMETHASONE. [Suspect]
     Active Substance: DEXAMETHASONE
     Indication: PLASMA CELL MYELOMA
     Dosage: CYCLE 5 DAY 15 (40 MG)
     Route: 048
     Dates: end: 20170608
  17. LEKOVIT CA [Concomitant]
     Active Substance: CALCIUM CARBONATE\CHOLECALCIFEROL
     Indication: MINERAL SUPPLEMENTATION
     Dosage: 500 MG, 1 IN 1 D
     Route: 048
     Dates: start: 20170314
  18. AMOXICILLIN TRIHYDRATE [Concomitant]
     Active Substance: AMOXICILLIN
     Indication: INFECTION PROPHYLAXIS
     Dosage: 1875 MG (625 MG, 3 IN 1 D)
     Route: 048
     Dates: start: 20170316
  19. TAMSULOSIN HYDROCHLORIDE. [Concomitant]
     Active Substance: TAMSULOSIN HYDROCHLORIDE
     Indication: URINARY RETENTION
     Dosage: 400 MICROGRAM, 1 IN 1 D
     Route: 048
     Dates: start: 20170313
  20. NITROFURANTOIN. [Concomitant]
     Active Substance: NITROFURANTOIN
     Indication: URINARY TRACT INFECTION
     Dosage: 50 MG, 2 IN 1 WK
     Route: 048
     Dates: start: 20170605
  21. DALTEPARIN SODIUM [Concomitant]
     Active Substance: DALTEPARIN SODIUM
     Indication: PULMONARY EMBOLISM
     Dosage: 12500 IU,  1 IN 1 D
     Route: 058
     Dates: start: 20170312

REACTIONS (6)
  - Dyspnoea [Not Recovered/Not Resolved]
  - Abdominal pain [Recovered/Resolved]
  - Fatigue [Not Recovered/Not Resolved]
  - Large intestine perforation [Recovered/Resolved with Sequelae]
  - Cardiac disorder [Recovering/Resolving]
  - Decreased appetite [Not Recovered/Not Resolved]

NARRATIVE: CASE EVENT DATE: 20170105
